FAERS Safety Report 25632465 (Version 3)
Quarter: 2025Q3

REPORT INFORMATION
  Report Type: Spontaneous
  Country: EU (occurrence: EU)
  Receive Date: 20250801
  Receipt Date: 20250919
  Transmission Date: 20251021
  Serious: Yes (Other)
  Sender: MYLAN
  Company Number: EU-TEVA-VS-3350281

PATIENT
  Age: 74 Year
  Sex: Male

DRUGS (6)
  1. ZOLPIDEM [Suspect]
     Active Substance: ZOLPIDEM TARTRATE
     Indication: Sleep disorder
  2. ZOLPIDEM [Suspect]
     Active Substance: ZOLPIDEM TARTRATE
     Indication: Initial insomnia
  3. MELATONIN [Suspect]
     Active Substance: MELATONIN
     Indication: Sleep disorder
  4. MELATONIN [Suspect]
     Active Substance: MELATONIN
     Indication: Initial insomnia
  5. TRAZODONE HYDROCHLORIDE [Suspect]
     Active Substance: TRAZODONE HYDROCHLORIDE
     Indication: Depression
  6. Ferbisol [Concomitant]
     Indication: Product used for unknown indication

REACTIONS (16)
  - Respiratory depression [Unknown]
  - Chronic obstructive pulmonary disease [Unknown]
  - Anaemia [Unknown]
  - Poor prognosis [Unknown]
  - Fatigue [Unknown]
  - Weight decreased [Unknown]
  - Poor quality sleep [Unknown]
  - Insomnia [Unknown]
  - Vital functions abnormal [Unknown]
  - Contraindication to medical treatment [Unknown]
  - Intentional product misuse [Unknown]
  - Drug ineffective [Unknown]
  - Contraindicated product administered [Unknown]
  - Somnolence [Unknown]
  - Sedation [Unknown]
  - Depression [Unknown]

NARRATIVE: CASE EVENT DATE: 20250101
